FAERS Safety Report 8361690-4 (Version None)
Quarter: 2012Q2

REPORT INFORMATION
  Report Type: 
  Country: None (occurrence: None)
  Receive Date: 20120515
  Receipt Date: 20120411
  Transmission Date: 20120825
  Serious: No
  Sender: FDA-Public Use
  Company Number: US-ABBOTT-12P-163-0925488-00

PATIENT
  Age: 39 Year
  Sex: Female
  Weight: 63.56 kg

DRUGS (3)
  1. PROMETRIUM [Suspect]
     Indication: ANTIOESTROGEN THERAPY
  2. THYROID TAB [Concomitant]
     Indication: HORMONE REPLACEMENT THERAPY
     Dates: start: 20120101
  3. PROMETRIUM [Suspect]
     Indication: ENDOMETRIOSIS
     Dosage: TAKE ON DAYS 11-28 OF CYCLE AT BEDTIME
     Dates: start: 20120406

REACTIONS (3)
  - OFF LABEL USE [None]
  - THINKING ABNORMAL [None]
  - FATIGUE [None]
